FAERS Safety Report 5361504-0 (Version None)
Quarter: 2007Q2

REPORT INFORMATION
  Report Type: 
  Country: None (occurrence: None)
  Receive Date: 20070530
  Receipt Date: 20070112
  Transmission Date: 20071010
  Serious: No
  Sender: FDA-Public Use
  Company Number: 2007PV027552

PATIENT
  Age: 46 Year
  Sex: Female
  Weight: 74.8435 kg

DRUGS (5)
  1. BYETTA [Suspect]
     Indication: DIABETES MELLITUS NON-INSULIN-DEPENDENT
     Dosage: 5 MCG; BID; SC
     Route: 058
     Dates: start: 20061216, end: 20070106
  2. JANUVIA [Suspect]
  3. METFORMIN HCL [Concomitant]
  4. ALTACE [Concomitant]
  5. ACTOS [Concomitant]

REACTIONS (6)
  - DECREASED APPETITE [None]
  - DRUG INEFFECTIVE [None]
  - ERUCTATION [None]
  - GOUT [None]
  - NAUSEA [None]
  - WEIGHT INCREASED [None]
